FAERS Safety Report 24291744 (Version 1)
Quarter: 2024Q3

REPORT INFORMATION
  Report Type: Report from Study
  Country: US (occurrence: US)
  Receive Date: 20240906
  Receipt Date: 20240906
  Transmission Date: 20241017
  Serious: No
  Sender: SUNOVION
  Company Number: US-SMPA-2024SPA001253AA

PATIENT

DRUGS (4)
  1. ORGOVYX [Suspect]
     Active Substance: RELUGOLIX
     Indication: Prostate cancer
     Dosage: 120 MG, QD
     Route: 048
     Dates: start: 20221116
  2. GABAPENTIN [Suspect]
     Active Substance: GABAPENTIN
     Indication: Sciatica
     Dosage: UNK
     Route: 065
  3. TYLENOL [Suspect]
     Active Substance: ACETAMINOPHEN
     Indication: Pain
     Dosage: UNK
     Route: 065
  4. MIRALAX [Concomitant]
     Active Substance: POLYETHYLENE GLYCOL 3350
     Dosage: UNK
     Route: 065

REACTIONS (4)
  - Headache [Unknown]
  - Toothache [Unknown]
  - Sciatica [Unknown]
  - Bowel movement irregularity [Unknown]
